FAERS Safety Report 17014912 (Version 1)
Quarter: 2019Q4

REPORT INFORMATION
  Report Type: Spontaneous
  Country: GB (occurrence: GB)
  Receive Date: 20191111
  Receipt Date: 20191111
  Transmission Date: 20200122
  Serious: Yes (Other)
  Sender: FDA-Public Use
  Company Number: GB-TEVA-2019-GB-1135742

PATIENT
  Age: 4 Year
  Sex: Male
  Weight: 10 kg

DRUGS (2)
  1. PHENOXYMETHYLPENICILLIN [Suspect]
     Active Substance: PENICILLIN V
     Dosage: FOR 5 DAYS
     Dates: start: 20190925, end: 20191002
  2. PHENOXYMETHYLPENICILLIN [Suspect]
     Active Substance: PENICILLIN V
     Dosage: 125MG/5ML
     Dates: start: 20191004

REACTIONS (2)
  - Pruritus [Recovered/Resolved]
  - Urticaria [Recovered/Resolved]

NARRATIVE: CASE EVENT DATE: 20191004
